FAERS Safety Report 4288896-8 (Version None)
Quarter: 2004Q1

REPORT INFORMATION
  Report Type: 
  Country: None (occurrence: None)
  Receive Date: 20040203
  Receipt Date: 20030107
  Transmission Date: 20041129
  Serious: Yes (Other)
  Sender: FDA-Public Use
  Company Number: 200225669BWH

PATIENT
  Age: 40 Year
  Sex: Female
  Weight: 58.0604 kg

DRUGS (4)
  1. AVELOX [Suspect]
     Indication: SINUSITIS
     Dosage: 400 MG, QD, ORAL
     Route: 048
     Dates: start: 20021008
  2. BIRTH CONTROL PILL [Concomitant]
  3. VALTREX [Concomitant]
  4. ALLEGRA [Concomitant]

REACTIONS (15)
  - ANAPHYLACTOID REACTION [None]
  - BLISTER [None]
  - CHEST WALL PAIN [None]
  - CHILLS [None]
  - DYSPNOEA [None]
  - FATIGUE [None]
  - HYPERSENSITIVITY [None]
  - HYPOAESTHESIA [None]
  - MYALGIA [None]
  - OBSTRUCTIVE AIRWAYS DISORDER [None]
  - ORAL MUCOSAL BLISTERING [None]
  - PAIN [None]
  - PHARYNGOLARYNGEAL PAIN [None]
  - SWOLLEN TONGUE [None]
  - TONGUE BLISTERING [None]
